FAERS Safety Report 9342349 (Version 2)
Quarter: 2013Q2

REPORT INFORMATION
  Report Type: Spontaneous
  Country: DE (occurrence: DE)
  Receive Date: 20130611
  Receipt Date: 20130621
  Transmission Date: 20140414
  Serious: Yes (Hospitalization, Other)
  Sender: FDA-Public Use
  Company Number: DE-JNJFOC-20130603214

PATIENT
  Age: 72 Year
  Sex: Male

DRUGS (6)
  1. XARELTO [Suspect]
     Indication: EMBOLISM VENOUS
     Route: 048
     Dates: start: 201303
  2. XARELTO [Suspect]
     Indication: PULMONARY EMBOLISM
     Route: 048
     Dates: start: 201303
  3. ISOSORBIDE DINITRATE [Concomitant]
     Route: 065
  4. CAPTOPRIL [Concomitant]
     Dosage: 50/25 MG
     Route: 065
  5. METFORMIN HCL [Concomitant]
     Dosage: 1/2-0-1/2
     Route: 065
  6. IPRATROPIUM BROMIDE [Concomitant]
     Route: 065

REACTIONS (7)
  - Cerebral haemorrhage [Recovered/Resolved]
  - Fall [Recovered/Resolved]
  - Atrioventricular block complete [Recovered/Resolved]
  - Syncope [Recovered/Resolved]
  - Craniocerebral injury [Recovered/Resolved]
  - Laceration [Recovered/Resolved]
  - Pulmonary embolism [Unknown]
